FAERS Safety Report 6668744-9 (Version None)
Quarter: 2010Q2

REPORT INFORMATION
  Report Type: 
  Country: None (occurrence: None)
  Receive Date: 20100406
  Receipt Date: 20100324
  Transmission Date: 20101027
  Serious: Yes (Hospitalization)
  Sender: FDA-Public Use
  Company Number: DE-ELI_LILLY_AND_COMPANY-DE201002005355

PATIENT
  Sex: Female

DRUGS (6)
  1. EFFIENT [Suspect]
     Indication: ACUTE CORONARY SYNDROME
     Dosage: 60 MG, UNKNOWN
     Route: 048
  2. EFFIENT [Suspect]
     Dosage: 10 MG, RECEIVED ONLY ONE DOSE
     Route: 048
     Dates: start: 20100216, end: 20100216
  3. ASPIRIN [Concomitant]
     Dosage: 100 (UNITS UNSPECIFIED), UNKNOWN
     Route: 065
  4. METOPROLOL SUCCINATE [Concomitant]
     Dosage: UNK, UNKNOWN
     Route: 065
  5. DELIX PLUS [Concomitant]
     Dosage: UNK, UNKNOWN
     Route: 065
  6. CRESTOR /01588602/ [Concomitant]
     Dosage: 20 MG, UNKNOWN
     Route: 065

REACTIONS (1)
  - VASCULITIS [None]
